FAERS Safety Report 18619656 (Version 1)
Quarter: 2020Q4

REPORT INFORMATION
  Report Type: Spontaneous
  Country: ZA (occurrence: ZA)
  Receive Date: 20201215
  Receipt Date: 20201215
  Transmission Date: 20210114
  Serious: Yes (Hospitalization)
  Sender: FDA-Public Use
  Company Number: ZA-PFIZER INC-2020493802

PATIENT
  Age: 22 Year
  Sex: Female
  Weight: 55.6 kg

DRUGS (2)
  1. CYTOTEC [Suspect]
     Active Substance: MISOPROSTOL
     Indication: ABORTION INDUCED
     Dosage: 5 TABLETS, ONCE
     Route: 048
     Dates: start: 20201207, end: 20201207
  2. CYTOTEC [Suspect]
     Active Substance: MISOPROSTOL
     Dosage: 5 TABLETS, ONCE
     Route: 067
     Dates: start: 20201207, end: 20201207

REACTIONS (4)
  - Off label use [Unknown]
  - Product use issue [Unknown]
  - Postpartum haemorrhage [Recovered/Resolved]
  - Retained placenta or membranes [Recovered/Resolved]

NARRATIVE: CASE EVENT DATE: 20201207
